FAERS Safety Report 16122125 (Version 1)
Quarter: 2019Q2

REPORT INFORMATION
  Report Type: Spontaneous
  Country: US (occurrence: US)
  Receive Date: 20190326
  Receipt Date: 20190326
  Transmission Date: 20190711
  Serious: No
  Sender: FDA-Public Use
  Company Number: None

PATIENT
  Age: 65 Year
  Sex: Female
  Weight: 82.35 kg

DRUGS (1)
  1. DOXYCYCLINE MONO 100 MG CAP PAR [Suspect]
     Active Substance: DOXYCYCLINE
     Indication: SINUSITIS
     Dosage: ?          QUANTITY:1 CAPSULE(S);?
     Route: 048
     Dates: start: 20190318, end: 20190322

REACTIONS (4)
  - Mania [None]
  - Anxiety [None]
  - Paranoia [None]
  - Insomnia [None]

NARRATIVE: CASE EVENT DATE: 20190318
